FAERS Safety Report 5867308-4 (Version None)
Quarter: 2008Q3

REPORT INFORMATION
  Report Type: 
  Country: None (occurrence: None)
  Receive Date: 20080829
  Receipt Date: 20080829
  Transmission Date: 20090109
  Serious: Yes (Hospitalization)
  Sender: FDA-Public Use
  Company Number: None

PATIENT
  Age: 65 Year
  Sex: Male
  Weight: 95.62 kg

DRUGS (2)
  1. AMOXICILLIN + CLAVULANATE POTASSIUM [Suspect]
     Dosage: 1 TAB  BID  PO
     Route: 048
     Dates: start: 20071219, end: 20071229
  2. CLINDAMYCIN HCL [Suspect]
     Indication: UPPER RESPIRATORY TRACT INFECTION
     Dosage: 300 MG QID PO
     Route: 048
     Dates: start: 20071213, end: 20071223

REACTIONS (16)
  - ANAEMIA [None]
  - CHEST PAIN [None]
  - COUGH [None]
  - DYSPNOEA [None]
  - HYPOPHAGIA [None]
  - KIDNEY SMALL [None]
  - LIMB INJURY [None]
  - MIDDLE INSOMNIA [None]
  - NEPHRITIS INTERSTITIAL [None]
  - NEPHROLITHIASIS [None]
  - PYREXIA [None]
  - RENAL CYST [None]
  - RENAL FAILURE ACUTE [None]
  - SPUTUM DISCOLOURED [None]
  - SWELLING FACE [None]
  - WEIGHT INCREASED [None]
